FAERS Safety Report 9672042 (Version 4)
Quarter: 2014Q1

REPORT INFORMATION
  Report Type: Spontaneous
  Country: JP (occurrence: JP)
  Receive Date: 20131106
  Receipt Date: 20140102
  Transmission Date: 20141002
  Serious: Yes (Other)
  Sender: FDA-Public Use
  Company Number: JP-GLAXOSMITHKLINE-B0939540A

PATIENT
  Age: 78 Year
  Sex: Female

DRUGS (11)
  1. REQUIP [Suspect]
     Indication: PARKINSON^S DISEASE
     Dosage: 4MG PER DAY
     Route: 048
     Dates: start: 20130928
  2. REQUIP [Suspect]
     Indication: PARKINSON^S DISEASE
     Dosage: 1MG THREE TIMES PER DAY
     Route: 048
     Dates: end: 20130927
  3. MENESIT [Suspect]
     Indication: PRODUCT USED FOR UNKNOWN INDICATION
     Route: 048
  4. LYRICA [Suspect]
     Indication: PRODUCT USED FOR UNKNOWN INDICATION
     Dosage: 50MG TWICE PER DAY
     Route: 048
  5. GASMOTIN [Concomitant]
     Dosage: 5MG THREE TIMES PER DAY
     Route: 048
  6. BIO-THREE [Concomitant]
     Dosage: 1IUAX THREE TIMES PER DAY
     Route: 048
  7. DONEPEZIL HYDROCHLORIDE [Concomitant]
     Dosage: 5MG PER DAY
     Route: 048
  8. OMEPRAL [Concomitant]
     Dosage: 10MG PER DAY
     Route: 048
  9. LIPITOR [Concomitant]
     Dosage: 5MG PER DAY
     Route: 048
  10. MAGNESIUM OXIDE [Concomitant]
     Dosage: 250MG TWICE PER DAY
     Route: 048
  11. VOLTAREN [Concomitant]
     Route: 061

REACTIONS (2)
  - Sudden onset of sleep [Unknown]
  - Hallucination, visual [Unknown]
